FAERS Safety Report 26064848 (Version 1)
Quarter: 2025Q4

REPORT INFORMATION
  Report Type: Spontaneous
  Country: US (occurrence: US)
  Receive Date: 20251119
  Receipt Date: 20251119
  Transmission Date: 20260118
  Serious: No
  Sender: NOVARTIS
  Company Number: US-002147023-NVSC2025US177090

PATIENT
  Age: 29 Year
  Sex: Male

DRUGS (1)
  1. RHAPSIDO [Suspect]
     Active Substance: REMIBRUTINIB
     Indication: Chronic spontaneous urticaria
     Dosage: 25 MG, BID
     Route: 048
     Dates: start: 202511, end: 202511

REACTIONS (1)
  - Petechiae [Unknown]

NARRATIVE: CASE EVENT DATE: 20251101
